FAERS Safety Report 9233413 (Version 6)
Quarter: 2013Q2

REPORT INFORMATION
  Report Type: Report from Study
  Country: CA (occurrence: CA)
  Receive Date: 20130416
  Receipt Date: 20130627
  Transmission Date: 20140414
  Serious: Yes (Hospitalization)
  Sender: FDA-Public Use
  Company Number: CA-BAYER-2013-045712

PATIENT
  Age: 72 Year
  Sex: Male
  Weight: 88.3 kg

DRUGS (10)
  1. REGORAFENIB [Suspect]
     Indication: COLON CANCER METASTATIC
     Dosage: 160 MG DAILY (3 WEEKS ON/ 1 WEEK OFF)
     Route: 048
     Dates: start: 20130313, end: 20130403
  2. DIOVAN [Concomitant]
     Indication: HYPERTENSION
     Dosage: 160 MG, QD
     Route: 048
     Dates: start: 2010
  3. METFORMIN [Concomitant]
     Indication: TYPE 2 DIABETES MELLITUS
     Dosage: 1000
     Route: 048
     Dates: start: 2003
  4. PARIET [Concomitant]
     Indication: GASTROOESOPHAGEAL REFLUX DISEASE
     Dosage: 20 MG, QD
     Route: 048
     Dates: start: 201111
  5. ZOFRAN [Concomitant]
     Indication: NAUSEA
     Dosage: 8 MG, PRN
     Route: 048
     Dates: start: 2011
  6. SENNOSIDE [Concomitant]
     Indication: CONSTIPATION
     Dosage: 1- 2 TAB PRN
     Route: 048
     Dates: start: 20130321
  7. COLACE [Concomitant]
     Indication: CONSTIPATION
     Dosage: 2 PILLS
     Route: 048
     Dates: start: 201303
  8. MAGNESIUM [Concomitant]
     Dosage: 250 MG, QD
     Route: 048
     Dates: start: 201110
  9. IMODIUM [Concomitant]
     Indication: DIARRHOEA
     Dosage: 1- 2 TAB PRN
     Route: 048
     Dates: start: 2012
  10. STEMETIL [Concomitant]
     Indication: NAUSEA
     Dosage: 10 MG, QD
     Route: 048
     Dates: start: 2012

REACTIONS (1)
  - Pancreatitis [Recovered/Resolved]
